FAERS Safety Report 4980895-3 (Version None)
Quarter: 2006Q2

REPORT INFORMATION
  Report Type: 
  Country: None (occurrence: None)
  Receive Date: 20060418
  Receipt Date: 20060405
  Transmission Date: 20061013
  Serious: Yes (Other)
  Sender: FDA-Public Use
  Company Number: 2006049108

PATIENT
  Age: 78 Year
  Sex: Male
  Weight: 74.8435 kg

DRUGS (15)
  1. CAVERJECT [Suspect]
     Indication: ERECTILE DYSFUNCTION
     Dosage: 40 MCG (40 MCG, DAILY AS NEEDED)
     Dates: start: 20060201
  2. NORVASC [Concomitant]
  3. ZOLOFT [Concomitant]
  4. LASIX [Concomitant]
  5. VASOTEC [Concomitant]
  6. ZOCOR [Concomitant]
  7. GLUCOVANCE [Concomitant]
  8. SPIRONOLACTONE [Concomitant]
  9. PREVACID [Concomitant]
  10. WELLBUTRIN XL [Concomitant]
  11. TOPROL-XL [Concomitant]
  12. ALL OTHER THERAPEUTIC PRODUCTS (ALL OTHER THERAPEUTIC PRODUCTS) [Concomitant]
  13. VITAMINS (VITAMINS) [Concomitant]
  14. ASPIRIN [Concomitant]
  15. GARLIC (GARLIC) [Concomitant]

REACTIONS (2)
  - DRUG EFFECT DECREASED [None]
  - METASTATIC MALIGNANT MELANOMA [None]
